FAERS Safety Report 7955704 (Version 4)
Quarter: 2014Q2

REPORT INFORMATION
  Report Type: Spontaneous
  Country: US (occurrence: US)
  Receive Date: 20110523
  Receipt Date: 20140423
  Transmission Date: 20141212
  Serious: Yes (Other)
  Sender: FDA-Public Use
  Company Number: US-ASTRAZENECA-2009UW06379

PATIENT
  Age: 81 Year
  Sex: Female
  Weight: 45.4 kg

DRUGS (12)
  1. TOPROL XL [Suspect]
     Indication: HYPERTENSION
     Route: 048
  2. TOPROL XL [Suspect]
     Indication: HYPERTENSION
     Route: 048
  3. TOPROL XL [Suspect]
     Indication: HYPERTENSION
     Route: 048
  4. TOPROL XL [Suspect]
     Indication: HYPERTENSION
     Route: 048
  5. TOPROL XL [Suspect]
     Indication: HYPERTENSION
     Route: 048
  6. NEXIUM [Suspect]
     Route: 048
  7. ASPIRIN [Concomitant]
  8. SUPPLEMENTS [Concomitant]
  9. RESTORIL [Concomitant]
  10. FIUROCET [Concomitant]
  11. PERCOCET [Concomitant]
     Indication: PAIN
  12. ATIVAN [Concomitant]
     Dosage: AS REQUIRED

REACTIONS (17)
  - Hypertension [Not Recovered/Not Resolved]
  - Hepatitis D [Unknown]
  - Pain in extremity [Unknown]
  - Hypothyroidism [Unknown]
  - Body height decreased [Not Recovered/Not Resolved]
  - Pain [Unknown]
  - Osteoporosis [Unknown]
  - Tachycardia [Unknown]
  - Anxiety [Unknown]
  - Palpitations [Unknown]
  - Headache [Unknown]
  - Nightmare [Unknown]
  - Alopecia [Not Recovered/Not Resolved]
  - Fatigue [Not Recovered/Not Resolved]
  - Neck pain [Unknown]
  - Alopecia [Not Recovered/Not Resolved]
  - Drug ineffective [Unknown]
